FAERS Safety Report 22235361 (Version 2)
Quarter: 2023Q2

REPORT INFORMATION
  Report Type: Spontaneous
  Country: US (occurrence: None)
  Receive Date: 20230420
  Receipt Date: 20230530
  Transmission Date: 20230722
  Serious: Yes (Hospitalization, Disabling)
  Sender: FDA-Public Use
  Company Number: 2023A086235

PATIENT
  Age: 87 Year
  Sex: Male

DRUGS (2)
  1. PULMICORT FLEXHALER [Suspect]
     Active Substance: BUDESONIDE
     Indication: Product used for unknown indication
     Dosage: 90MCG, 60 ACT. INHALER PRESCRIBED ABOUT 12 DAYS AGO (IN 2023) AS 2 PUFFS TWICE A DAY.
     Route: 055
     Dates: start: 2023
  2. SYMBICORT [Suspect]
     Active Substance: BUDESONIDE\FORMOTEROL FUMARATE DIHYDRATE
     Indication: Product used for unknown indication
     Dosage: UNKNOWN UNKNOWN
     Route: 055

REACTIONS (7)
  - Heart rate increased [Recovered/Resolved]
  - Blindness unilateral [Unknown]
  - Eye disorder [Not Recovered/Not Resolved]
  - Device use issue [Not Recovered/Not Resolved]
  - Device use error [Unknown]
  - Wrong technique in device usage process [Unknown]
  - Product container seal issue [Unknown]

NARRATIVE: CASE EVENT DATE: 20230101
